FAERS Safety Report 8573226-3 (Version None)
Quarter: 2012Q3

REPORT INFORMATION
  Report Type: 
  Country: None (occurrence: None)
  Receive Date: 20120806
  Receipt Date: 20120730
  Transmission Date: 20120928
  Serious: Yes (Hospitalization, Other)
  Sender: FDA-Public Use
  Company Number: US-PFIZER INC-2012118337

PATIENT
  Age: 59 Year
  Sex: Female
  Weight: 70.295 kg

DRUGS (1)
  1. REVATIO [Suspect]
     Indication: PULMONARY HYPERTENSION
     Dosage: UNK, 3X/DAY
     Route: 048
     Dates: start: 20120201

REACTIONS (5)
  - GLOMERULAR FILTRATION RATE ABNORMAL [None]
  - MALAISE [None]
  - DRUG LEVEL BELOW THERAPEUTIC [None]
  - BLOOD PRESSURE SYSTOLIC ABNORMAL [None]
  - HYPOTENSION [None]
